FAERS Safety Report 6814148-5 (Version None)
Quarter: 2010Q3

REPORT INFORMATION
  Report Type: 
  Country: None (occurrence: None)
  Receive Date: 20100702
  Receipt Date: 20100427
  Transmission Date: 20110219
  Serious: No
  Sender: FDA-Public Use
  Company Number: A0856924A

PATIENT
  Age: 5 Year
  Sex: Male

DRUGS (2)
  1. ADVAIR DISKUS 100/50 [Suspect]
     Indication: ASTHMA
     Dosage: 2PUFF TWICE PER DAY
     Route: 055
     Dates: start: 20100330
  2. SINGULAIR [Concomitant]

REACTIONS (4)
  - ADVERSE EVENT [None]
  - EYE DISCHARGE [None]
  - IRRITABILITY [None]
  - OCULAR HYPERAEMIA [None]
